FAERS Safety Report 4371546-X (Version None)
Quarter: 2004Q2

REPORT INFORMATION
  Report Type: 
  Country: None (occurrence: None)
  Receive Date: 20040607
  Receipt Date: 20040526
  Transmission Date: 20050107
  Serious: Yes (Death, Hospitalization)
  Sender: FDA-Public Use
  Company Number: JP-JNJFOC-20040503056

PATIENT
  Sex: Male
  Weight: 55 kg

DRUGS (9)
  1. REMICADE [Suspect]
     Indication: RHEUMATOID ARTHRITIS
     Route: 041
     Dates: start: 20040408
  2. PREDONINE [Suspect]
     Indication: RHEUMATOID ARTHRITIS
     Route: 049
     Dates: start: 20010501, end: 20040502
  3. RHEUMATREX [Concomitant]
     Indication: RHEUMATOID ARTHRITIS
     Route: 049
     Dates: start: 20040114, end: 20040423
  4. METHOTREXATE [Concomitant]
     Route: 065
     Dates: start: 20030312, end: 20040113
  5. METHOTREXATE [Concomitant]
     Route: 065
     Dates: start: 20030312, end: 20040113
  6. AZULFIDINE [Concomitant]
     Indication: RHEUMATOID ARTHRITIS
     Route: 049
     Dates: start: 20010101, end: 20040423
  7. MOBIC [Concomitant]
     Indication: RHEUMATOID ARTHRITIS
     Route: 049
     Dates: start: 20030809, end: 20040423
  8. ISCOTIN [Concomitant]
     Route: 049
     Dates: start: 20040408, end: 20040423
  9. OPALMON [Concomitant]
     Route: 049
     Dates: start: 20010101, end: 20040423

REACTIONS (8)
  - BLOOD ALKALINE PHOSPHATASE INCREASED [None]
  - GASTROINTESTINAL NECROSIS [None]
  - HAEMATOCRIT DECREASED [None]
  - HAEMOGLOBIN DECREASED [None]
  - MELAENA [None]
  - RED BLOOD CELL COUNT DECREASED [None]
  - SHOCK HAEMORRHAGIC [None]
  - ULCER [None]
